FAERS Safety Report 4871589-3 (Version None)
Quarter: 2005Q4

REPORT INFORMATION
  Report Type: 
  Country: None (occurrence: None)
  Receive Date: 20051230
  Receipt Date: 20051216
  Transmission Date: 20060501
  Serious: Yes (Other)
  Sender: FDA-Public Use
  Company Number: 13092

PATIENT
  Age: 95 Year
  Sex: Male

DRUGS (10)
  1. GLYCERYL TRINITRATE [Suspect]
     Indication: ANGINA PECTORIS
     Dosage: 500 MICROGRAM PSN SL
  2. DILTIAZEM HCL [Concomitant]
  3. ASPIRIN [Concomitant]
  4. CO-AMILOFRUSE [Concomitant]
  5. ISMN [Concomitant]
  6. NICORANDIL [Concomitant]
  7. ZOLADEX             /00732101/ [Concomitant]
  8. LANSOPRAZOLE [Concomitant]
  9. DICLOFENAC [Concomitant]
  10. CO-CODAMOL [Concomitant]

REACTIONS (2)
  - CIRCUMSTANCE OR INFORMATION CAPABLE OF LEADING TO MEDICATION ERROR [None]
  - DRUG INEFFECTIVE [None]
